FAERS Safety Report 22142243 (Version 2)
Quarter: 2023Q2

REPORT INFORMATION
  Report Type: Report from Study
  Country: DE (occurrence: DE)
  Receive Date: 20230327
  Receipt Date: 20230404
  Transmission Date: 20230721
  Serious: Yes (Life-Threatening)
  Sender: FDA-Public Use
  Company Number: DE-PFIZER INC-PV202300054213

PATIENT
  Age: 46 Year
  Sex: Female

DRUGS (4)
  1. GEMTUZUMAB OZOGAMICIN [Suspect]
     Active Substance: GEMTUZUMAB OZOGAMICIN
  2. MIDOSTAURIN [Suspect]
     Active Substance: MIDOSTAURIN
  3. CYTARABINE [Concomitant]
     Active Substance: CYTARABINE
  4. DAUNORUBICIN [Concomitant]
     Active Substance: DAUNORUBICIN

REACTIONS (1)
  - Subileus [Unknown]
